FAERS Safety Report 8108958-4 (Version None)
Quarter: 2012Q1

REPORT INFORMATION
  Report Type: 
  Country: None (occurrence: None)
  Receive Date: 20120202
  Receipt Date: 20120104
  Transmission Date: 20120608
  Serious: No
  Sender: FDA-Public Use
  Company Number: US-AMGEN-USASP2012000473

PATIENT
  Age: 41 Year
  Sex: Male

DRUGS (1)
  1. ENBREL [Suspect]
     Indication: PSORIATIC ARTHROPATHY
     Dosage: 50 MG, QWK
     Dates: start: 20111014

REACTIONS (6)
  - COUGH [None]
  - NASAL CONGESTION [None]
  - VIRAL INFECTION [None]
  - SINUSITIS [None]
  - HEADACHE [None]
  - NASOPHARYNGITIS [None]
